FAERS Safety Report 6687607-6 (Version None)
Quarter: 2010Q2

REPORT INFORMATION
  Report Type: 
  Country: None (occurrence: None)
  Receive Date: 20100416
  Receipt Date: 20100416
  Transmission Date: 20101027
  Serious: Yes (Death)
  Sender: FDA-Public Use
  Company Number: None

PATIENT
  Age: 56 Year
  Sex: Male
  Weight: 116 kg

DRUGS (12)
  1. HUMIRA [Suspect]
     Indication: PSORIATIC ARTHROPATHY
  2. LUMIGAN EYE DROPS [Concomitant]
  3. COUMADIN [Concomitant]
  4. FUROSEMIDE [Concomitant]
  5. SPIRONOLACTONE [Concomitant]
  6. ZOCOR [Concomitant]
  7. MAG OXIDE [Concomitant]
  8. ACIDOPHILLUS [Concomitant]
  9. DOCUSATE SODIUM [Concomitant]
  10. HERBAL SUPPLEMENTS INCLUDING GARLIC AND ESTER [Concomitant]
  11. LANTUS [Concomitant]
  12. NOVOLOG SLIDING SCALE [Concomitant]

REACTIONS (3)
  - DIALYSIS [None]
  - SEPSIS [None]
  - STAPHYLOCOCCAL INFECTION [None]
